FAERS Safety Report 7438466-5 (Version None)
Quarter: 2011Q2

REPORT INFORMATION
  Report Type: 
  Country: None (occurrence: None)
  Receive Date: 20110418
  Receipt Date: 20110411
  Transmission Date: 20111010
  Serious: Yes (Hospitalization, Other)
  Sender: FDA-Public Use
  Company Number: 2011SP013083

PATIENT
  Age: 86 Year
  Sex: Female

DRUGS (7)
  1. REMERON [Suspect]
     Indication: PRODUCT USED FOR UNKNOWN INDICATION
     Dosage: 30 MG;QD;PO
     Route: 048
     Dates: start: 20110107, end: 20110119
  2. FENTANYL [Suspect]
     Indication: BACK PAIN
     Dosage: TOP
     Route: 061
     Dates: start: 20070101, end: 20110117
  3. JANUVIA [Suspect]
     Indication: PRODUCT USED FOR UNKNOWN INDICATION
     Dosage: 100 MG;QD;PO
     Route: 048
     Dates: start: 20100901, end: 20110119
  4. ZOLPIDEM [Concomitant]
  5. DALFAGAN [Concomitant]
  6. MOTILIUM [Concomitant]
  7. TOLTERODINE TARTRATE [Suspect]
     Indication: PRODUCT USED FOR UNKNOWN INDICATION
     Dosage: 4 MG;QD;PO
     Route: 048
     Dates: end: 20110119

REACTIONS (19)
  - HYPONATRAEMIA [None]
  - CONSTIPATION [None]
  - ENTEROCOCCAL SEPSIS [None]
  - WEIGHT DECREASED [None]
  - DECREASED APPETITE [None]
  - HYPOKALAEMIA [None]
  - ABDOMINAL PAIN UPPER [None]
  - RASH PRURITIC [None]
  - PYREXIA [None]
  - ESCHERICHIA URINARY TRACT INFECTION [None]
  - GENERAL PHYSICAL HEALTH DETERIORATION [None]
  - LEUKOCYTOSIS [None]
  - ESCHERICHIA INFECTION [None]
  - HEPATIC FUNCTION ABNORMAL [None]
  - TACHYCARDIA [None]
  - NAUSEA [None]
  - VOMITING [None]
  - C-REACTIVE PROTEIN INCREASED [None]
  - FAECALOMA [None]
